FAERS Safety Report 9485838 (Version 1)
Quarter: 2013Q3

REPORT INFORMATION
  Report Type: Spontaneous
  Country: US (occurrence: None)
  Receive Date: 20130826
  Receipt Date: 20130826
  Transmission Date: 20140515
  Serious: Yes (Other)
  Sender: FDA-Public Use
  Company Number: 2013SA013206

PATIENT
  Age: 32 Year
  Sex: 0

DRUGS (1)
  1. ICY HOT ARM NECK LEG AND SMALL AREAS [Suspect]
     Indication: RIB FRACTURE
     Dates: start: 20130201, end: 20130203

REACTIONS (2)
  - Application site pain [None]
  - Application site erythema [None]
